FAERS Safety Report 4586254-X (Version None)
Quarter: 2005Q1

REPORT INFORMATION
  Report Type: 
  Country: None (occurrence: None)
  Receive Date: 20050125
  Receipt Date: 20041208
  Transmission Date: 20050727
  Serious: No
  Sender: FDA-Public Use
  Company Number: USA041081795

PATIENT
  Age: 87 Year
  Sex: Female

DRUGS (3)
  1. FORTEO [Suspect]
     Indication: OSTEOPOROSIS
     Dates: start: 20041019
  2. CALCIUM WITH VITAMIN D [Concomitant]
  3. ACTONEL [Concomitant]

REACTIONS (6)
  - ACCIDENTAL NEEDLE STICK [None]
  - ACCIDENTAL OVERDOSE [None]
  - CONSTIPATION [None]
  - DIARRHOEA [None]
  - FEAR [None]
  - NAUSEA [None]
